FAERS Safety Report 9857568 (Version 2)
Quarter: 2014Q4

REPORT INFORMATION
  Report Type: Spontaneous
  Country: JP (occurrence: JP)
  Receive Date: 20140131
  Receipt Date: 20141008
  Transmission Date: 20150529
  Serious: Yes (Other)
  Sender: FDA-Public Use
  Company Number: PHHY2014JP009104

PATIENT
  Age: 2 Year
  Sex: Female

DRUGS (9)
  1. VALPROIC ACID. [Suspect]
     Active Substance: VALPROIC ACID
     Indication: MUSCLE SPASMS
  2. CLOBAZAM [Suspect]
     Active Substance: CLOBAZAM
  3. LAMOTRIGINE. [Suspect]
     Active Substance: LAMOTRIGINE
  4. TOPIRAMATE. [Suspect]
     Active Substance: TOPIRAMATE
  5. MIDAZOLAM [Concomitant]
     Active Substance: MIDAZOLAM\MIDAZOLAM HYDROCHLORIDE
     Route: 042
  6. VALPROIC ACID. [Suspect]
     Active Substance: VALPROIC ACID
     Indication: EPILEPSY
     Dosage: 11 MG/KG,PER DAY
  7. VITAMIN B6 [Suspect]
     Active Substance: PYRIDOXINE HYDROCHLORIDE
  8. CLONAZEPAM. [Suspect]
     Active Substance: CLONAZEPAM
  9. PHENOBARBITAL. [Suspect]
     Active Substance: PHENOBARBITAL
     Indication: TONIC CONVULSION
     Route: 048

REACTIONS (5)
  - Stupor [Recovering/Resolving]
  - Automatism [Recovering/Resolving]
  - Drug ineffective [Unknown]
  - Status epilepticus [Recovering/Resolving]
  - Drug level decreased [Unknown]
